FAERS Safety Report 7586119-5 (Version None)
Quarter: 2011Q2

REPORT INFORMATION
  Report Type: 
  Country: None (occurrence: None)
  Receive Date: 20110629
  Receipt Date: 20110629
  Transmission Date: 20111010
  Serious: Yes (Other)
  Sender: FDA-Public Use
  Company Number: None

PATIENT
  Sex: Male
  Weight: 95.2554 kg

DRUGS (1)
  1. LOSARTAN TAB [Suspect]
     Indication: CARDIAC DISORDER
     Dosage: 50 MG. ONCE DAILY
     Dates: start: 20100501, end: 20101001

REACTIONS (6)
  - PALPITATIONS [None]
  - AMNESIA [None]
  - CONFUSIONAL STATE [None]
  - ARTHRALGIA [None]
  - SKIN EXFOLIATION [None]
  - COLITIS [None]
